FAERS Safety Report 24060925 (Version 1)
Quarter: 2024Q3

REPORT INFORMATION
  Report Type: Spontaneous
  Country: US (occurrence: None)
  Receive Date: 20240705
  Receipt Date: 20240705
  Transmission Date: 20241017
  Serious: No
  Sender: Public
  Company Number: None

PATIENT
  Age: 55 Year
  Sex: Female
  Weight: 66.6 kg

DRUGS (1)
  1. XOLAIR [Suspect]
     Active Substance: OMALIZUMAB
     Indication: Urticaria chronic
     Dosage: OTHER FREQUENCY : ONCE E A MONTH;?
     Route: 058

REACTIONS (7)
  - Pain [None]
  - Arthralgia [None]
  - Arthralgia [None]
  - Arthralgia [None]
  - Back pain [None]
  - Headache [None]
  - Bedridden [None]

NARRATIVE: CASE EVENT DATE: 20240703
